FAERS Safety Report 11313611 (Version 8)
Quarter: 2016Q1

REPORT INFORMATION
  Report Type: Report from Study
  Country: BR (occurrence: BR)
  Receive Date: 20150727
  Receipt Date: 20160129
  Transmission Date: 20160525
  Serious: Yes (Death, Hospitalization, Other)
  Sender: FDA-Public Use
  Company Number: BR-ALEXION PHARMACEUTICALS INC-A201502724

PATIENT
  Age: 40 Year
  Sex: Female

DRUGS (7)
  1. FLUCONAZOLE. [Concomitant]
     Active Substance: FLUCONAZOLE
     Indication: PRODUCT USED FOR UNKNOWN INDICATION
     Dosage: UNK
     Route: 065
  2. CYCLOSPORINE. [Concomitant]
     Active Substance: CYCLOSPORINE
     Indication: APLASTIC ANAEMIA
     Dosage: UNK
     Route: 048
     Dates: start: 20150516
  3. SOLIRIS [Suspect]
     Active Substance: ECULIZUMAB
     Dosage: 900 MG, SINGLE
     Route: 042
     Dates: start: 20151202, end: 20151202
  4. SOLIRIS [Suspect]
     Active Substance: ECULIZUMAB
     Dosage: 900 MG, Q2W
     Route: 042
     Dates: start: 20150616, end: 20151106
  5. ACYCLOVIR                          /00587301/ [Concomitant]
     Active Substance: ACYCLOVIR
     Indication: PROPHYLAXIS
     Dosage: UNK
     Route: 048
  6. SOLIRIS [Suspect]
     Active Substance: ECULIZUMAB
     Indication: PAROXYSMAL NOCTURNAL HAEMOGLOBINURIA
     Dosage: 600 MG, QW
     Route: 042
     Dates: start: 20150518, end: 20150608
  7. CAMPATH [Concomitant]
     Active Substance: ALEMTUZUMAB
     Indication: APLASTIC ANAEMIA
     Dosage: UNK
     Route: 042
     Dates: start: 20150511

REACTIONS (19)
  - Anaemia [Not Recovered/Not Resolved]
  - Vomiting [Recovered/Resolved]
  - Diarrhoea [Recovered/Resolved]
  - Asthenia [Not Recovered/Not Resolved]
  - Platelet count decreased [Unknown]
  - Haemoglobin decreased [Unknown]
  - Respiratory disorder [Fatal]
  - Asthenia [Not Recovered/Not Resolved]
  - Drug ineffective [Unknown]
  - Renal pain [Unknown]
  - Food poisoning [Recovered/Resolved]
  - Pyrexia [Recovered/Resolved]
  - Systemic mycosis [Fatal]
  - Haemoglobin abnormal [Unknown]
  - Cough [Recovered/Resolved]
  - Chills [Unknown]
  - Urinary tract infection [Unknown]
  - Gastrointestinal infection [Recovered/Resolved]
  - Platelet count decreased [Unknown]

NARRATIVE: CASE EVENT DATE: 201506
